FAERS Safety Report 14918122 (Version 1)
Quarter: 2018Q2

REPORT INFORMATION
  Report Type: Spontaneous
  Country: US (occurrence: US)
  Receive Date: 20180502
  Receipt Date: 20180502
  Transmission Date: 20180711
  Serious: Yes (Hospitalization)
  Sender: FDA-Public Use
  Company Number: None

PATIENT
  Age: 46 Year
  Sex: Female

DRUGS (16)
  1. IBRANCE [Suspect]
     Active Substance: PALBOCICLIB
     Indication: BREAST CANCER METASTATIC
     Route: 048
     Dates: start: 20170809
  2. ATORVASTATIN [Concomitant]
     Active Substance: ATORVASTATIN
  3. ALLOPURINOL. [Concomitant]
     Active Substance: ALLOPURINOL
  4. METOLAZONE. [Concomitant]
     Active Substance: METOLAZONE
  5. CARVEDILOL. [Concomitant]
     Active Substance: CARVEDILOL
  6. LEVEMIR [Concomitant]
     Active Substance: INSULIN DETEMIR
  7. NOVOFINE [Concomitant]
     Active Substance: INSULIN NOS
  8. SPIRONOLACTONE. [Concomitant]
     Active Substance: SPIRONOLACTONE
  9. NOVOLOG [Concomitant]
     Active Substance: INSULIN ASPART
  10. LETROZOLE. [Concomitant]
     Active Substance: LETROZOLE
  11. LISINOPRIL. [Concomitant]
     Active Substance: LISINOPRIL
  12. LEVOTHYROXINE. [Concomitant]
     Active Substance: LEVOTHYROXINE
  13. ELIQUIS [Concomitant]
     Active Substance: APIXABAN
  14. FUROSEMIDE. [Concomitant]
     Active Substance: FUROSEMIDE
  15. CITALOPRAM [Concomitant]
     Active Substance: CITALOPRAM HYDROBROMIDE
  16. OLANZAPINE. [Concomitant]
     Active Substance: OLANZAPINE

REACTIONS (1)
  - Hospitalisation [None]

NARRATIVE: CASE EVENT DATE: 20180426
